FAERS Safety Report 16458980 (Version 1)
Quarter: 2019Q2

REPORT INFORMATION
  Report Type: Spontaneous
  Country: US (occurrence: US)
  Receive Date: 20190510
  Receipt Date: 20190510
  Transmission Date: 20190711
  Serious: No
  Sender: FDA-Public Use
  Company Number: None

PATIENT
  Age: 48 Year
  Sex: Female

DRUGS (1)
  1. COSENTYX [Suspect]
     Active Substance: SECUKINUMAB
     Dates: start: 20190404

REACTIONS (4)
  - Device leakage [None]
  - Device malfunction [None]
  - Psoriasis [None]
  - Incorrect dose administered by device [None]

NARRATIVE: CASE EVENT DATE: 20190504
